FAERS Safety Report 20850969 (Version 1)
Quarter: 2022Q2

REPORT INFORMATION
  Report Type: Spontaneous
  Country: CA (occurrence: CA)
  Receive Date: 20220519
  Receipt Date: 20220519
  Transmission Date: 20220720
  Serious: Yes (Other)
  Sender: FDA-Public Use
  Company Number: CA-INCYTE CORPORATION-2022IN001223

PATIENT

DRUGS (1)
  1. PEMAZYRE [Suspect]
     Active Substance: PEMIGATINIB
     Indication: Adenocarcinoma pancreas
     Dosage: 13.5 MILLIGRAM, QD FOR 14 DAYS
     Route: 048
     Dates: start: 20220107, end: 20220203

REACTIONS (7)
  - Adenocarcinoma pancreas [Unknown]
  - Jaundice [Unknown]
  - Abdominal pain [Unknown]
  - Liver function test increased [Unknown]
  - Blood bilirubin increased [Unknown]
  - Disease progression [Unknown]
  - Off label use [Unknown]

NARRATIVE: CASE EVENT DATE: 20220107
